FAERS Safety Report 8362812-1 (Version None)
Quarter: 2012Q2

REPORT INFORMATION
  Report Type: 
  Country: None (occurrence: None)
  Receive Date: 20120516
  Receipt Date: 20120504
  Transmission Date: 20120825
  Serious: Yes (Death, Hospitalization, Disabling)
  Sender: FDA-Public Use
  Company Number: FR-MPIJNJ-2012-02690

PATIENT

DRUGS (3)
  1. VELCADE [Suspect]
     Indication: MULTIPLE MYELOMA
     Dosage: 2.2 MG, UNK
     Route: 042
     Dates: start: 20110901, end: 20110901
  2. VELCADE [Suspect]
     Dosage: 2.2 MG, UNK
     Route: 042
     Dates: start: 20111117, end: 20111215
  3. VELCADE [Suspect]
     Dosage: 2.6 MG, UNK
     Route: 042
     Dates: start: 20111010, end: 20111114

REACTIONS (2)
  - PROGRESSIVE MULTIFOCAL LEUKOENCEPHALOPATHY [None]
  - SEPTIC SHOCK [None]
